FAERS Safety Report 13150940 (Version 1)
Quarter: 2017Q1

REPORT INFORMATION
  Report Type: Spontaneous
  Country: US (occurrence: US)
  Receive Date: 20170119
  Receipt Date: 20170119
  Transmission Date: 20170428
  Serious: Yes (Disabling, Other)
  Sender: FDA-Public Use
  Company Number: None

PATIENT
  Age: 63 Year
  Sex: Female
  Weight: 55.8 kg

DRUGS (6)
  1. LUTEIN [Concomitant]
     Active Substance: LUTEIN
  2. NAPROXEN 500 MG [Suspect]
     Active Substance: NAPROXEN
     Indication: ROTATOR CUFF SYNDROME
     Dosage: ?          QUANTITY:60 TABLET(S);?
     Route: 048
     Dates: start: 20161122, end: 20170113
  3. FLAXSEED [Concomitant]
     Active Substance: FLAX SEED
  4. VITAMIN D3 [Concomitant]
     Active Substance: CHOLECALCIFEROL
  5. DAILY VITAMINS [Concomitant]
  6. ZEAXANTHIN [Concomitant]
     Active Substance: ZEAXANTHIN

REACTIONS (1)
  - Tinnitus [None]

NARRATIVE: CASE EVENT DATE: 20170102
